FAERS Safety Report 21806544 (Version 2)
Quarter: 2023Q1

REPORT INFORMATION
  Report Type: Spontaneous
  Country: US (occurrence: US)
  Receive Date: 20230102
  Receipt Date: 20230127
  Transmission Date: 20230418
  Serious: No
  Sender: FDA-Public Use
  Company Number: US-009507513-2212USA011230

PATIENT
  Sex: Male

DRUGS (2)
  1. MOLNUPIRAVIR [Suspect]
     Active Substance: MOLNUPIRAVIR
     Indication: COVID-19 treatment
     Dosage: 4 CAPSULES EVERY 12 HOURS
     Route: 048
     Dates: start: 20221229
  2. LISINOPRIL [Suspect]
     Active Substance: LISINOPRIL
     Indication: Hypertension
     Dosage: 5 MILLIGRAM DAILY
     Route: 048

REACTIONS (3)
  - Polydipsia [Not Recovered/Not Resolved]
  - Eczema [Unknown]
  - Feeling jittery [Unknown]

NARRATIVE: CASE EVENT DATE: 20221229
